FAERS Safety Report 17833929 (Version 1)
Quarter: 2020Q2

REPORT INFORMATION
  Report Type: Spontaneous
  Country: US (occurrence: US)
  Receive Date: 20200528
  Receipt Date: 20200528
  Transmission Date: 20200714
  Serious: No
  Sender: FDA-Public Use
  Company Number: None

PATIENT
  Age: 62 Year
  Sex: Male
  Weight: 87.12 kg

DRUGS (5)
  1. LISINOPRIL. [Concomitant]
     Active Substance: LISINOPRIL
  2. HYDROCHLOROTHIAZIDE. [Concomitant]
     Active Substance: HYDROCHLOROTHIAZIDE
  3. TASIGNA [Suspect]
     Active Substance: NILOTINIB
     Indication: LEUKAEMIA
     Route: 048
     Dates: start: 20190424
  4. METOPROLOL. [Concomitant]
     Active Substance: METOPROLOL
  5. XARELTO [Concomitant]
     Active Substance: RIVAROXABAN

REACTIONS (1)
  - Disease progression [None]

NARRATIVE: CASE EVENT DATE: 20200528
